FAERS Safety Report 9181548 (Version 1)
Quarter: 2013Q1

REPORT INFORMATION
  Report Type: Spontaneous
  Country: US (occurrence: None)
  Receive Date: 20120621
  Receipt Date: 20120621
  Transmission Date: 20140127
  Serious: Yes (Other)
  Sender: FDA-Public Use
  Company Number: 032880

PATIENT
  Age: 68 Year
  Sex: Female
  Weight: 45 kg

DRUGS (6)
  1. CIMZIA [Suspect]
     Indication: CROHN^S DISEASE
     Dosage: ONCE A MONTH.
     Route: 058
     Dates: start: 20110318
  2. ZYRTEC/ 00884302 [Concomitant]
  3. PRENATAL VITAMINS/ 01549301 [Concomitant]
  4. VITAMIN B12 NOS [Concomitant]
  5. PREMARIN/00073001 [Concomitant]
  6. ZOLOFT/01011401 [Concomitant]

REACTIONS (2)
  - Seasonal allergy [None]
  - Pharyngitis streptococcal [None]
